FAERS Safety Report 17203261 (Version 6)
Quarter: 2021Q2

REPORT INFORMATION
  Report Type: Spontaneous
  Country: US (occurrence: US)
  Receive Date: 20191226
  Receipt Date: 20210424
  Transmission Date: 20210716
  Serious: Yes (Hospitalization)
  Sender: FDA-Public Use
  Company Number: US-SHIRE-US201944496

PATIENT
  Sex: Female
  Weight: 45 kg

DRUGS (13)
  1. GATTEX [Suspect]
     Active Substance: TEDUGLUTIDE\WATER
     Indication: SHORT-BOWEL SYNDROME
     Dosage: 2.32 MILLIGRAM, 1X/DAY:QD
     Route: 058
     Dates: start: 201404
  2. GATTEX [Suspect]
     Active Substance: TEDUGLUTIDE\WATER
     Dosage: 2.32 MILLIGRAM, 1X/DAY:QD
     Route: 058
     Dates: start: 20151109
  3. GATTEX [Suspect]
     Active Substance: TEDUGLUTIDE\WATER
     Dosage: 2.32 MILLIGRAM, 1X/DAY:QD
     Route: 062
     Dates: start: 201404
  4. GATTEX [Suspect]
     Active Substance: TEDUGLUTIDE\WATER
     Dosage: 2.32 MILLIGRAM, 1X/DAY:QD
     Route: 062
     Dates: start: 201404
  5. GATTEX [Suspect]
     Active Substance: TEDUGLUTIDE\WATER
     Indication: SHORT-BOWEL SYNDROME
     Dosage: 2.32 MILLIGRAM, 1X/DAY:QD
     Route: 058
     Dates: start: 201404
  6. GATTEX [Suspect]
     Active Substance: TEDUGLUTIDE\WATER
     Dosage: 2.32 MILLIGRAM, 1X/DAY:QD
     Route: 062
     Dates: start: 201404
  7. GATTEX [Suspect]
     Active Substance: TEDUGLUTIDE\WATER
     Indication: SHORT-BOWEL SYNDROME
     Dosage: 2.32 MILLIGRAM, 1X/DAY:QD
     Route: 058
     Dates: start: 201404
  8. GATTEX [Suspect]
     Active Substance: TEDUGLUTIDE\WATER
     Dosage: 2.32 MILLIGRAM, 1X/DAY:QD
     Route: 058
     Dates: start: 20151109
  9. GATTEX [Suspect]
     Active Substance: TEDUGLUTIDE\WATER
     Dosage: 2.32 MILLIGRAM, 1X/DAY:QD
     Route: 058
     Dates: start: 20151109
  10. GATTEX [Suspect]
     Active Substance: TEDUGLUTIDE\WATER
     Dosage: 2.32 MILLIGRAM, 1X/DAY:QD
     Route: 062
     Dates: start: 201404
  11. METHOTREXATE [METHOTREXATE SODIUM] [Concomitant]
     Active Substance: METHOTREXATE SODIUM
     Indication: CROHN^S DISEASE
     Dosage: 15 MILLIGRAM, 1/WEEK
     Route: 065
     Dates: start: 201807
  12. GATTEX [Suspect]
     Active Substance: TEDUGLUTIDE\WATER
     Indication: SHORT-BOWEL SYNDROME
     Dosage: 2.32 MILLIGRAM, 1X/DAY:QD
     Route: 058
     Dates: start: 201404
  13. GATTEX [Suspect]
     Active Substance: TEDUGLUTIDE\WATER
     Dosage: 2.32 MILLIGRAM, 1X/DAY:QD
     Route: 058
     Dates: start: 20151109

REACTIONS (2)
  - Oropharyngeal dysplasia [Unknown]
  - Syringe issue [Unknown]

NARRATIVE: CASE EVENT DATE: 2014
